FAERS Safety Report 7556846-4 (Version None)
Quarter: 2011Q2

REPORT INFORMATION
  Report Type: 
  Country: None (occurrence: None)
  Receive Date: 20110620
  Receipt Date: 20110616
  Transmission Date: 20111010
  Serious: Yes (Other)
  Sender: FDA-Public Use
  Company Number: US-PFIZER INC-2011132522

PATIENT
  Sex: Female

DRUGS (1)
  1. EFFEXOR [Suspect]
     Dosage: UNK
     Dates: start: 20030101

REACTIONS (4)
  - HEADACHE [None]
  - WITHDRAWAL SYNDROME [None]
  - VERTIGO [None]
  - ACTIVITIES OF DAILY LIVING IMPAIRED [None]
